FAERS Safety Report 6989138-2 (Version None)
Quarter: 2010Q3

REPORT INFORMATION
  Report Type: 
  Country: None (occurrence: None)
  Receive Date: 20100916
  Receipt Date: 20091007
  Transmission Date: 20110219
  Serious: Yes (Other)
  Sender: FDA-Public Use
  Company Number: US-PFIZER INC-2009281692

PATIENT
  Sex: Female
  Weight: 99.773 kg

DRUGS (7)
  1. LYRICA [Suspect]
     Indication: COMPLEX REGIONAL PAIN SYNDROME
     Dosage: 75 MG IN THE MORNING AND 150 MG AT NIGHT
     Dates: start: 20090101
  2. LYRICA [Suspect]
     Dosage: 75 MG, UNK
     Dates: start: 20090101
  3. PERCOCET [Concomitant]
     Indication: PAIN
     Dosage: UNK
  4. NORETHINDRONE [Concomitant]
     Indication: ENDOMETRIOSIS
     Dosage: UNK
  5. ALISKIREN [Concomitant]
     Indication: BLOOD PRESSURE
     Dosage: UNK
  6. AMLODIPINE/OLMESARTAN MEDOXOMIL [Concomitant]
     Dosage: UNK
  7. ACETYLSALICYLIC ACID [Concomitant]
     Dosage: 81 MG, 1X/DAY

REACTIONS (7)
  - DIZZINESS [None]
  - DRUG INEFFECTIVE [None]
  - EYE SWELLING [None]
  - INFLUENZA [None]
  - LYMPHADENOPATHY [None]
  - SWELLING FACE [None]
  - WEIGHT DECREASED [None]
